FAERS Safety Report 9725283 (Version 1)
Quarter: 2013Q4

REPORT INFORMATION
  Report Type: Spontaneous
  Country: US (occurrence: None)
  Receive Date: 20131129
  Receipt Date: 20131129
  Transmission Date: 20140711
  Serious: Yes (Hospitalization)
  Sender: FDA-Public Use
  Company Number: AT-ALSI-201300282

PATIENT
  Age: 74 Year
  Sex: Male

DRUGS (1)
  1. LIQUID OXYGEN [Suspect]
     Indication: PRODUCT USED FOR UNKNOWN INDICATION
     Dosage: RESPIRATORY
     Dates: start: 20130823

REACTIONS (5)
  - Frostbite [None]
  - Burns second degree [None]
  - Fall [None]
  - Wrong technique in drug usage process [None]
  - Device leakage [None]
